FAERS Safety Report 17039670 (Version 1)
Quarter: 2019Q4

REPORT INFORMATION
  Report Type: Report from Study
  Country: JP (occurrence: JP)
  Receive Date: 20191116
  Receipt Date: 20191116
  Transmission Date: 20200122
  Serious: Yes (Death)
  Sender: FDA-Public Use
  Company Number: JP-INGENUS PHARMACEUTICALS, LLC-2019INF000375

PATIENT

DRUGS (4)
  1. NAB-PACLITAXEL [Suspect]
     Active Substance: PACLITAXEL
     Indication: NON-SMALL CELL LUNG CANCER
     Dosage: 100 MILLIGRAM/SQ. METER, ON DAYS 1,8, AND 15 EVERY 3 WEEKS
     Route: 065
  2. CARBOPLATIN. [Suspect]
     Active Substance: CARBOPLATIN
     Indication: INTERSTITIAL LUNG DISEASE
  3. CARBOPLATIN. [Suspect]
     Active Substance: CARBOPLATIN
     Indication: NON-SMALL CELL LUNG CANCER
     Dosage: 6 MG/ML/MIN,ON DAY 1, AUC = 6, EVERY 3 WEEKS
     Route: 065
  4. NAB-PACLITAXEL [Suspect]
     Active Substance: PACLITAXEL
     Indication: INTERSTITIAL LUNG DISEASE

REACTIONS (4)
  - Pneumonitis [Fatal]
  - Interstitial lung disease [Fatal]
  - Respiratory failure [Fatal]
  - Condition aggravated [Fatal]
